FAERS Safety Report 13512058 (Version 2)
Quarter: 2017Q2

REPORT INFORMATION
  Report Type: Spontaneous
  Country: US (occurrence: US)
  Receive Date: 20170504
  Receipt Date: 20170512
  Transmission Date: 20170830
  Serious: Yes (Hospitalization, Other)
  Sender: FDA-Public Use
  Company Number: US-BAUSCH-BL-2017-011821

PATIENT
  Age: 63 Year
  Sex: Female

DRUGS (5)
  1. XIFAXAN [Suspect]
     Active Substance: RIFAXIMIN
     Route: 048
     Dates: start: 201503
  2. XIFAXAN [Suspect]
     Active Substance: RIFAXIMIN
     Dosage: ONE IN TWO DAYS
     Route: 048
     Dates: start: 201703
  3. XIFAXAN [Suspect]
     Active Substance: RIFAXIMIN
     Indication: HEPATIC CIRRHOSIS
     Route: 048
     Dates: start: 2014
  4. XIFAXAN [Suspect]
     Active Substance: RIFAXIMIN
     Route: 048
     Dates: start: 201702
  5. LACTULOSE. [Concomitant]
     Active Substance: LACTULOSE
     Indication: HEPATIC CIRRHOSIS
     Route: 048

REACTIONS (11)
  - Skin infection [Recovered/Resolved]
  - Kidney infection [Recovered/Resolved]
  - Treatment noncompliance [Unknown]
  - Malaise [Recovered/Resolved]
  - Drug dose omission [Unknown]
  - Skin necrosis [Recovered/Resolved]
  - Liver disorder [Unknown]
  - Constipation [Recovered/Resolved]
  - Dyspnoea [Recovered/Resolved]
  - Hallucination [Recovered/Resolved]
  - Altered state of consciousness [Recovered/Resolved]

NARRATIVE: CASE EVENT DATE: 2014
